FAERS Safety Report 5510914-7 (Version None)
Quarter: 2007Q4

REPORT INFORMATION
  Report Type: 
  Country: None (occurrence: None)
  Receive Date: 20071029
  Receipt Date: 20071017
  Transmission Date: 20080405
  Serious: Yes (Other)
  Sender: FDA-Public Use
  Company Number: AEUSA200700235

PATIENT
  Age: 35 Year
  Sex: Female
  Weight: 63.5036 kg

DRUGS (6)
  1. GAMUNEX [Suspect]
     Indication: AUTOIMMUNE DISORDER
     Dosage: 40 GM; TOTAL; IV
     Route: 042
     Dates: start: 20070911, end: 20070911
  2. ASPIRIN [Concomitant]
  3. LOVENOX [Concomitant]
  4. DEXAMETHASONE [Concomitant]
  5. AMOXICILLIN [Concomitant]
  6. PROGESTERONE [Concomitant]

REACTIONS (1)
  - HEPATITIS B ANTIBODY POSITIVE [None]
